FAERS Safety Report 20749338 (Version 2)
Quarter: 2022Q2

REPORT INFORMATION
  Report Type: Spontaneous
  Country: US (occurrence: US)
  Receive Date: 20220426
  Receipt Date: 20220516
  Transmission Date: 20220720
  Serious: No
  Sender: FDA-Public Use
  Company Number: US-LEADINGPHARMA-US-2022LEASPO00059

PATIENT
  Sex: Female

DRUGS (1)
  1. FUROSEMIDE [Suspect]
     Active Substance: FUROSEMIDE
     Indication: Product used for unknown indication
     Route: 065

REACTIONS (1)
  - Drug ineffective [Unknown]
